FAERS Safety Report 23041600 (Version 5)
Quarter: 2023Q4

REPORT INFORMATION
  Report Type: Report from Study
  Country: US (occurrence: US)
  Receive Date: 20231007
  Receipt Date: 20231204
  Transmission Date: 20240110
  Serious: No
  Sender: FDA-Public Use
  Company Number: US-002147023-NVSC2023US211850

PATIENT
  Sex: Female

DRUGS (1)
  1. KISQALI [Suspect]
     Active Substance: RIBOCICLIB
     Indication: Product used for unknown indication
     Dosage: UNK
     Route: 048

REACTIONS (10)
  - White blood cell count decreased [Unknown]
  - Pyrexia [Unknown]
  - Nausea [Unknown]
  - Decreased appetite [Unknown]
  - Constipation [Unknown]
  - Abdominal pain upper [Unknown]
  - Fatigue [Unknown]
  - Tumour marker increased [Unknown]
  - Feeling abnormal [Unknown]
  - Drug ineffective [Unknown]
